FAERS Safety Report 8337847-5 (Version None)
Quarter: 2012Q2

REPORT INFORMATION
  Report Type: 
  Country: None (occurrence: None)
  Receive Date: 20120504
  Receipt Date: 20120423
  Transmission Date: 20120825
  Serious: Yes (Hospitalization, Other)
  Sender: FDA-Public Use
  Company Number: US-ELI_LILLY_AND_COMPANY-US201204008374

PATIENT
  Sex: Female

DRUGS (2)
  1. FORTEO [Suspect]
     Indication: OSTEOPOROSIS
     Dosage: 20 UG, QD
     Dates: start: 20111230, end: 20120202
  2. FORTEO [Suspect]
     Dosage: 20 UG, QD
     Dates: start: 20120318

REACTIONS (4)
  - LOSS OF CONSCIOUSNESS [None]
  - DIZZINESS [None]
  - CAROTID ARTERY DISEASE [None]
  - DYSSTASIA [None]
